FAERS Safety Report 21287643 (Version 1)
Quarter: 2022Q3

REPORT INFORMATION
  Report Type: Report from Study
  Country: AU (occurrence: AU)
  Receive Date: 20220902
  Receipt Date: 20220902
  Transmission Date: 20221027
  Serious: Yes (Other)
  Sender: FDA-Public Use
  Company Number: AU-ABBVIE-22K-008-4524076-00

PATIENT
  Sex: Female

DRUGS (2)
  1. CARBIDOPA\LEVODOPA [Suspect]
     Active Substance: CARBIDOPA\LEVODOPA
     Indication: Parkinson^s disease
     Dosage: DOSE INCREASED
     Route: 050
     Dates: start: 20191104
  2. CARBIDOPA\LEVODOPA [Suspect]
     Active Substance: CARBIDOPA\LEVODOPA
     Route: 050

REACTIONS (10)
  - Carpal tunnel syndrome [Unknown]
  - Bradykinesia [Unknown]
  - Asthenia [Unknown]
  - Paraesthesia [Not Recovered/Not Resolved]
  - Posture abnormal [Unknown]
  - Muscle rigidity [Unknown]
  - Bradykinesia [Unknown]
  - Bradykinesia [Unknown]
  - Device issue [Unknown]
  - Loss of personal independence in daily activities [Unknown]
